FAERS Safety Report 4954653-X (Version None)
Quarter: 2006Q1

REPORT INFORMATION
  Report Type: 
  Country: None (occurrence: None)
  Receive Date: 20060327
  Receipt Date: 20060201
  Transmission Date: 20060701
  Serious: Yes (Hospitalization)
  Sender: FDA-Public Use
  Company Number: FR-ROCHE-434658

PATIENT
  Age: 59 Year
  Sex: Female
  Weight: 80 kg

DRUGS (1)
  1. XELODA [Suspect]
     Dosage: 1500 MG IN THE MORNING AND 2000 MG IN THE EVENING FOR FOURTEEN DAYS.
     Route: 048
     Dates: start: 20050511

REACTIONS (2)
  - ARTERIAL THROMBOSIS [None]
  - VENTRICULAR EXTRASYSTOLES [None]
